FAERS Safety Report 25736839 (Version 1)
Quarter: 2025Q3

REPORT INFORMATION
  Report Type: Spontaneous
  Country: US (occurrence: US)
  Receive Date: 20250828
  Receipt Date: 20250828
  Transmission Date: 20251020
  Serious: Yes (Hospitalization, Other)
  Sender: AMGEN
  Company Number: US-AMGEN-USASP2025165509

PATIENT
  Age: 68 Year
  Sex: Female

DRUGS (13)
  1. PREDNISONE [Suspect]
     Active Substance: PREDNISONE
     Indication: Follicular lymphoma
     Route: 065
  2. DARBEPOETIN ALFA [Suspect]
     Active Substance: DARBEPOETIN ALFA
     Indication: Anaemia
     Route: 065
  3. FILGRASTIM [Suspect]
     Active Substance: FILGRASTIM
     Indication: Cytokine release syndrome
     Route: 065
  4. ROMIPLOSTIM [Suspect]
     Active Substance: ROMIPLOSTIM
     Indication: Thrombocytopenia
     Route: 065
  5. CYCLOPHOSPHAMIDE [Concomitant]
     Active Substance: CYCLOPHOSPHAMIDE
  6. DOXORUBICIN [Concomitant]
     Active Substance: DOXORUBICIN
  7. VINCRISTINE [Concomitant]
     Active Substance: VINCRISTINE
  8. IBRITUMOMAB TIUXETAN [Concomitant]
     Active Substance: IBRITUMOMAB TIUXETAN
     Dates: start: 201703
  9. UMBRALISIB [Concomitant]
     Active Substance: UMBRALISIB
     Dates: start: 201810
  10. IDELALISIB [Concomitant]
     Active Substance: IDELALISIB
     Dates: start: 201904
  11. IFOSFAMIDE [Concomitant]
     Active Substance: IFOSFAMIDE
  12. CARBOPLATIN [Concomitant]
     Active Substance: CARBOPLATIN
  13. ETOPOSIDE [Concomitant]
     Active Substance: ETOPOSIDE

REACTIONS (6)
  - Pancytopenia [Recovered/Resolved]
  - Cytokine release syndrome [Unknown]
  - Bone marrow failure [Unknown]
  - Ecchymosis [Recovered/Resolved]
  - B-cell lymphoma [Unknown]
  - Petechiae [Unknown]
